FAERS Safety Report 5029431-6 (Version None)
Quarter: 2006Q2

REPORT INFORMATION
  Report Type: 
  Country: None (occurrence: None)
  Receive Date: 20060613
  Receipt Date: 20060529
  Transmission Date: 20061013
  Serious: Yes (Hospitalization)
  Sender: FDA-Public Use
  Company Number: POWERPMS-1

PATIENT
  Age: 68 Year
  Sex: Male

DRUGS (5)
  1. TEVETEN [Suspect]
     Dosage: 600 MG QD PO
     Route: 048
     Dates: start: 20060413
  2. ASPIRIN [Concomitant]
  3. AMLODIPINE [Concomitant]
  4. FEMOSTATIN [Concomitant]
  5. SPIRONOLACTONE [Concomitant]

REACTIONS (15)
  - ANIMAL BITE [None]
  - ANIMAL SCRATCH [None]
  - BLOOD CREATINE PHOSPHOKINASE INCREASED [None]
  - BLOOD POTASSIUM DECREASED [None]
  - CELLULITIS [None]
  - CORONARY ARTERY DISEASE [None]
  - DIABETES MELLITUS [None]
  - DYSPEPSIA [None]
  - HYPERCHOLESTEROLAEMIA [None]
  - HYPERTENSION [None]
  - MYALGIA [None]
  - MYOCARDIAL ISCHAEMIA [None]
  - PULMONARY FIBROSIS [None]
  - PULMONARY FUNCTION TEST DECREASED [None]
  - VIRAL MYOSITIS [None]
